FAERS Safety Report 18859663 (Version 1)
Quarter: 2021Q1

REPORT INFORMATION
  Report Type: Spontaneous
  Country: US (occurrence: US)
  Receive Date: 20210208
  Receipt Date: 20210208
  Transmission Date: 20210420
  Serious: Yes (Other)
  Sender: FDA-Public Use
  Company Number: None

PATIENT
  Age: 79 Year
  Sex: Female

DRUGS (18)
  1. OXYCONTIN [Concomitant]
     Active Substance: OXYCODONE HYDROCHLORIDE
  2. COREG [Concomitant]
     Active Substance: CARVEDILOL
  3. ASPIRIN. [Concomitant]
     Active Substance: ASPIRIN
  4. SENNA PLUS [Concomitant]
     Active Substance: DOCUSATE SODIUM\SENNOSIDES\SENNOSIDES A AND B
  5. GABAPENTIN. [Concomitant]
     Active Substance: GABAPENTIN
  6. AMLODIPINE [Concomitant]
     Active Substance: AMLODIPINE BESYLATE
  7. TYLENOL [Concomitant]
     Active Substance: ACETAMINOPHEN
  8. ZOFRAN [Concomitant]
     Active Substance: ONDANSETRON HYDROCHLORIDE
  9. PRILOSEC [Concomitant]
     Active Substance: OMEPRAZOLE MAGNESIUM
  10. PRISTIQ EXTENDED?RELEASE [Concomitant]
     Active Substance: DESVENLAFAXINE SUCCINATE
  11. ROPINIROLE. [Concomitant]
     Active Substance: ROPINIROLE
  12. ALEVE [Concomitant]
     Active Substance: NAPROXEN SODIUM
  13. IBRANCE [Suspect]
     Active Substance: PALBOCICLIB
     Indication: BREAST CANCER
     Route: 048
     Dates: start: 20210112
  14. METHADONE [Concomitant]
     Active Substance: METHADONE HYDROCHLORIDE
  15. ATORVASTATIN [Concomitant]
     Active Substance: ATORVASTATIN
  16. MYRBETRIQ [Concomitant]
     Active Substance: MIRABEGRON
  17. LEVOTHYROXINE. [Concomitant]
     Active Substance: LEVOTHYROXINE
  18. CALCIUM [Concomitant]
     Active Substance: CALCIUM

REACTIONS (1)
  - Asthenia [None]

NARRATIVE: CASE EVENT DATE: 20210208
